FAERS Safety Report 22087034 (Version 1)
Quarter: 2023Q1

REPORT INFORMATION
  Report Type: Spontaneous
  Country: US (occurrence: US)
  Receive Date: 20230313
  Receipt Date: 20230313
  Transmission Date: 20230418
  Serious: No
  Sender: FDA-Public Use
  Company Number: US-BAUSCHBL-2023BNL001930

PATIENT
  Sex: Female

DRUGS (1)
  1. ALREX [Suspect]
     Active Substance: LOTEPREDNOL ETABONATE
     Indication: Dry eye
     Route: 065

REACTIONS (2)
  - Eyelid disorder [Unknown]
  - Lid sulcus deepened [Unknown]
